FAERS Safety Report 5228724-7 (Version None)
Quarter: 2007Q1

REPORT INFORMATION
  Report Type: 
  Country: None (occurrence: None)
  Receive Date: 20070205
  Receipt Date: 20070123
  Transmission Date: 20070707
  Serious: Yes (Hospitalization, Other)
  Sender: FDA-Public Use
  Company Number: PHBS2007TR00656

PATIENT
  Age: 49 Year
  Sex: Female
  Weight: 71 kg

DRUGS (2)
  1. ZOMETA [Suspect]
     Dosage: UNK, UNK
     Route: 042
     Dates: start: 20030727, end: 20051001
  2. FEMARA [Suspect]
     Dosage: UNK, QD
     Route: 048
     Dates: start: 20020606, end: 20060801

REACTIONS (7)
  - ALANINE AMINOTRANSFERASE INCREASED [None]
  - BLOOD GLUCOSE INCREASED [None]
  - BONE LESION [None]
  - HEPATIC FUNCTION ABNORMAL [None]
  - OSTEOMYELITIS [None]
  - SWELLING [None]
  - WOUND DEBRIDEMENT [None]
